FAERS Safety Report 25646251 (Version 2)
Quarter: 2025Q3

REPORT INFORMATION
  Report Type: Spontaneous
  Country: US (occurrence: US)
  Receive Date: 20250805
  Receipt Date: 20250811
  Transmission Date: 20251020
  Serious: Yes (Death, Hospitalization, Other)
  Sender: SANOFI AVENTIS
  Company Number: US-SA-2025SA218022

PATIENT
  Age: 78 Year
  Sex: Female

DRUGS (20)
  1. DUPIXENT [Suspect]
     Active Substance: DUPILUMAB
     Indication: Chronic obstructive pulmonary disease
     Dosage: 300 MG, QOW
     Route: 058
     Dates: start: 202505, end: 20250720
  2. ATIVAN [Suspect]
     Active Substance: LORAZEPAM
     Indication: Respiratory failure
  3. LASIX [Concomitant]
     Active Substance: FUROSEMIDE
     Dosage: 1.000DF QD
     Route: 048
     Dates: start: 20250707, end: 20250721
  4. DIPROLENE [Concomitant]
     Active Substance: BETAMETHASONE DIPROPIONATE
     Indication: Rash
     Dosage: 1 G, BID
     Dates: start: 20250403
  5. TRELEGY ELLIPTA [Concomitant]
     Active Substance: FLUTICASONE FUROATE\UMECLIDINIUM BROMIDE\VILANTEROL TRIFENATATE
     Dosage: 1.000DF QD
     Route: 055
     Dates: start: 20250513, end: 20250721
  6. CHOLECALCIFEROL [Concomitant]
     Active Substance: CHOLECALCIFEROL
     Dosage: 1.000DF QD
     Route: 048
  7. ZEBETA [Concomitant]
     Active Substance: BISOPROLOL FUMARATE
     Dosage: 1 DF, QD
     Route: 048
     Dates: start: 20240408, end: 20250721
  8. TESSALON [Concomitant]
     Active Substance: BENZONATATE
     Indication: Cough
     Dosage: 1 DF, TID
     Route: 048
     Dates: start: 20250710, end: 20250721
  9. MUCINEX [Concomitant]
     Active Substance: GUAIFENESIN
     Dosage: 1.000DF Q12H
     Route: 048
     Dates: start: 20250710, end: 20250721
  10. MYCOSTATIN [Concomitant]
     Active Substance: NYSTATIN
     Indication: Candida infection
     Dosage: BID
     Route: 048
     Dates: start: 20250710, end: 20250721
  11. MUCOMYST [Concomitant]
     Active Substance: ACETYLCYSTEINE
     Indication: Cough
     Dates: start: 20250716, end: 20250721
  12. DELTASONE [Concomitant]
     Active Substance: PREDNISONE
     Dosage: 2.000DF QD
     Route: 048
     Dates: start: 20250714, end: 20250719
  13. ACTONEL [Concomitant]
     Active Substance: RISEDRONATE SODIUM
     Dosage: 1.000DF QM
     Route: 048
     Dates: start: 20240408, end: 20250721
  14. POTASSIUM CHLORIDE [Concomitant]
     Active Substance: POTASSIUM CHLORIDE
     Dosage: 1.000DF QD
     Route: 048
     Dates: start: 20250707, end: 20250721
  15. ZITHROMAX [Concomitant]
     Active Substance: AZITHROMYCIN DIHYDRATE
     Dosage: 0.5 DF, HS
     Route: 048
     Dates: start: 20250625, end: 20250721
  16. CEFTIN [Concomitant]
     Active Substance: CEFUROXIME AXETIL
     Dosage: 1 DF, BID
     Dates: start: 20250710, end: 20250720
  17. ALBUTEROL\IPRATROPIUM [Concomitant]
     Active Substance: ALBUTEROL\IPRATROPIUM
     Indication: Cough
     Dosage: 3 ML, Q8H
     Dates: start: 20250715, end: 20250721
  18. ALBUTEROL\IPRATROPIUM [Concomitant]
     Active Substance: ALBUTEROL\IPRATROPIUM
     Indication: Chest discomfort
  19. ALBUTEROL\IPRATROPIUM [Concomitant]
     Active Substance: ALBUTEROL\IPRATROPIUM
     Indication: Wheezing
  20. ALBUTEROL\IPRATROPIUM [Concomitant]
     Active Substance: ALBUTEROL\IPRATROPIUM
     Indication: Dyspnoea

REACTIONS (6)
  - Stress cardiomyopathy [Fatal]
  - Respiratory failure [Fatal]
  - Acute myocardial infarction [Fatal]
  - Ejection fraction decreased [Fatal]
  - Cardiac failure congestive [Fatal]
  - Somnolence [Unknown]

NARRATIVE: CASE EVENT DATE: 20250101
